FAERS Safety Report 5313629-3 (Version None)
Quarter: 2007Q2

REPORT INFORMATION
  Report Type: 
  Country: None (occurrence: None)
  Receive Date: 20070501
  Receipt Date: 20070424
  Transmission Date: 20071010
  Serious: Yes (Hospitalization)
  Sender: FDA-Public Use
  Company Number: 2007UW08043

PATIENT
  Age: 30 Year
  Sex: Female
  Weight: 80 kg

DRUGS (3)
  1. SELOZOK [Suspect]
     Indication: HYPERTENSION
     Route: 048
     Dates: start: 20050101
  2. HYDRALAZINE HCL [Suspect]
     Indication: HYPERTENSION
     Route: 048
     Dates: start: 20050101, end: 20060101
  3. ATMOS [Concomitant]
     Indication: HYPERTENSION
     Route: 048
     Dates: start: 20060101

REACTIONS (5)
  - DRUG EXPOSURE DURING PREGNANCY [None]
  - FATIGUE [None]
  - GENERALISED OEDEMA [None]
  - HYPERTENSIVE CRISIS [None]
  - WEIGHT INCREASED [None]
